FAERS Safety Report 6679510 (Version 11)
Quarter: 2012Q4

REPORT INFORMATION
  Report Type: 
  Country: US (occurrence: US)
  Receive Date: 20080624
  Receipt Date: 20121226
  Transmission Date: 20130627
  Serious: Yes (Hospitalization, Congenital Anomaly, Other)
  Sender: FDA-Public Use
  Company Number: US-PFIZER INC-2008049751

PATIENT
  Sex: Male
  Weight: 3 kg

DRUGS (6)
  1. ZOLOFT [Suspect]
     Dosage: 50 mg, UNK
     Route: 064
     Dates: start: 1992, end: 2009
  2. PRENATAL VITAMINS [Concomitant]
     Dosage: UNK
     Route: 064
  3. TYLENOL [Concomitant]
     Dosage: UNK
     Route: 064
  4. XANAX [Concomitant]
     Dosage: UNK
     Route: 064
  5. ROBITUSSIN [Concomitant]
     Dosage: UNK
     Route: 064
  6. SUDAFED [Concomitant]
     Dosage: UNK
     Route: 064

REACTIONS (20)
  - Foetal exposure during pregnancy [Unknown]
  - Hypertension [Unknown]
  - Pulmonary artery atresia [Not Recovered/Not Resolved]
  - Phaeochromocytoma [Recovered/Resolved]
  - Asplenia [Not Recovered/Not Resolved]
  - Transposition of the great vessels [Unknown]
  - Ventricular septal defect [Unknown]
  - Heart disease congenital [Unknown]
  - Glomerulonephritis [Unknown]
  - Hypoplastic right heart syndrome [Unknown]
  - Hypoplastic left heart syndrome [Unknown]
  - Atrioventricular septal defect [Unknown]
  - Renal hypertrophy [Unknown]
  - Heterotaxia [Unknown]
  - Sinusitis [Not Recovered/Not Resolved]
  - Renal failure [Unknown]
  - Atrial septal defect [Unknown]
  - Congenital anomaly [Unknown]
  - Cardiac disorder [Unknown]
  - Pleural effusion [Unknown]
